FAERS Safety Report 7952697 (Version 3)
Quarter: 2014Q1

REPORT INFORMATION
  Report Type: Spontaneous
  Country: US (occurrence: US)
  Receive Date: 20110519
  Receipt Date: 20140131
  Transmission Date: 20141002
  Serious: Yes (Hospitalization, Other)
  Sender: FDA-Public Use
  Company Number: US-BAYER-2011-042763

PATIENT
  Age: 16 Year
  Sex: Female
  Weight: 100 kg

DRUGS (17)
  1. YASMIN [Suspect]
     Indication: MUSCLE SPASMS
     Dosage: UNK
     Dates: start: 200610, end: 200910
  2. YASMIN [Suspect]
     Indication: CYST
  3. OCELLA [Suspect]
     Indication: MUSCLE SPASMS
     Dosage: UNK
     Dates: start: 200610, end: 200910
  4. OCELLA [Suspect]
     Indication: CYST
  5. NAPROXEN SODIUM W/PSEUDOEPHEDRINE HCL [Concomitant]
     Dosage: UNK
     Dates: start: 200901, end: 200912
  6. ZOLOFT [Concomitant]
     Indication: DEPRESSION
     Dosage: UNK
     Dates: start: 200801
  7. AZITHROMYCIN [Concomitant]
     Dosage: 250 MG, UNK
  8. TAMIFLU [Concomitant]
     Dosage: 75 MG, UNK
  9. FLUCONAZOLE [Concomitant]
     Dosage: 150 MG, UNK
  10. NYSTATIN [Concomitant]
     Dosage: 100000 U, UNK
  11. HYDROCODONE W/ACETAMINOPHEN [Concomitant]
     Dosage: 10-500 MG
  12. HYDROCODONE W/ACETAMINOPHEN [Concomitant]
     Dosage: 5-325 MG, UNK
  13. HYDROCODONE W/ACETAMINOPHEN [Concomitant]
     Dosage: 7.5-650 MG, UNK
     Dates: start: 20091221, end: 20100104
  14. OXYCODONE/APAP [Concomitant]
     Dosage: 5-325 MG, UNK
  15. NITROFURANTOIN [Concomitant]
     Dosage: 100 MG, BID
  16. PROMETHAZINE [Concomitant]
     Dosage: 25 MG, UNK
     Dates: start: 20091123, end: 20101128
  17. MORPHINE [Concomitant]

REACTIONS (8)
  - Cholecystectomy [None]
  - Biliary dyskinesia [None]
  - Cholecystitis [None]
  - Injury [None]
  - Pain [None]
  - Emotional distress [None]
  - Anhedonia [None]
  - Hepatic lesion [None]
